FAERS Safety Report 19395660 (Version 3)
Quarter: 2021Q3

REPORT INFORMATION
  Report Type: Spontaneous
  Country: US (occurrence: US)
  Receive Date: 20210609
  Receipt Date: 20210719
  Transmission Date: 20211014
  Serious: No
  Sender: FDA-Public Use
  Company Number: US-SLATE RUN PHARMACEUTICALS-21US000518

PATIENT

DRUGS (2)
  1. BUPROPION HYDROCHLORIDE EXTENDED RELEASE USP (XL) [Suspect]
     Active Substance: BUPROPION HYDROCHLORIDE
     Dosage: 150 MILLIGRAM
     Route: 048
  2. BUPROPION HYDROCHLORIDE EXTENDED RELEASE USP (XL) [Suspect]
     Active Substance: BUPROPION HYDROCHLORIDE
     Indication: DEPRESSION
     Dosage: 300 MILLIGRAM
     Route: 048

REACTIONS (4)
  - Depressed mood [Not Recovered/Not Resolved]
  - Product commingling [Not Recovered/Not Resolved]
  - Underdose [Not Recovered/Not Resolved]
  - Therapeutic product effect decreased [Not Recovered/Not Resolved]
